FAERS Safety Report 8809910 (Version 2)
Quarter: 2012Q4

REPORT INFORMATION
  Report Type: Report from Study
  Country: GB (occurrence: GB)
  Receive Date: 20120926
  Receipt Date: 20121004
  Transmission Date: 20130627
  Serious: Yes (Hospitalization)
  Sender: FDA-Public Use
  Company Number: GB-PFIZER INC-2012233351

PATIENT
  Age: 43 Year
  Sex: Female

DRUGS (8)
  1. EPIRUBICIN HCL [Suspect]
     Indication: BREAST CANCER
     Dosage: 200 mg, every 3 weeks
     Route: 042
     Dates: start: 20120608, end: 20120629
  2. EPIRUBICIN HCL [Suspect]
     Dosage: 200 mg, every 3 weeks
     Route: 042
     Dates: start: 20120705
  3. CYCLOPHOSPHAMIDE [Suspect]
     Indication: BREAST CANCER
     Dosage: 1000 mg, every 3 weeks
     Route: 042
     Dates: start: 20120608, end: 20120629
  4. CYCLOPHOSPHAMIDE [Suspect]
     Dosage: 1000 mg, every 3 weeks
     Route: 042
     Dates: start: 20120705
  5. FLUOROURACIL [Suspect]
     Indication: BREAST CANCER
     Dosage: 1000 mg, every 3 weeks
     Route: 042
     Dates: start: 20120608, end: 20120629
  6. FLUOROURACIL [Suspect]
     Dosage: 1000 mg, every 3 weeks
     Route: 042
     Dates: start: 20120705
  7. TRASTUZUMAB [Suspect]
     Indication: BREAST CANCER
     Dosage: 525 mg, every 3 weeks
     Route: 042
     Dates: start: 20120814
  8. PERTUZUMAB [Suspect]
     Indication: BREAST CANCER
     Dosage: UNK
     Dates: start: 20120814

REACTIONS (2)
  - Neutropenic sepsis [Recovered/Resolved]
  - Neutropenic sepsis [Unknown]
